FAERS Safety Report 10619153 (Version 1)
Quarter: 2014Q4

REPORT INFORMATION
  Report Type: Spontaneous
  Country: IT (occurrence: None)
  Receive Date: 20141126
  Receipt Date: 20141126
  Transmission Date: 20150529
  Serious: Yes (Hospitalization)
  Sender: FDA-Public Use
  Company Number: DEP_02375_2014

PATIENT
  Age: 1 Month
  Sex: Male

DRUGS (3)
  1. FENTANYL (FENTANYL) [Suspect]
     Active Substance: FENTANYL
     Indication: PRODUCT USED FOR UNKNOWN INDICATION
     Route: 002
  2. PECFENT [Suspect]
     Active Substance: FENTANYL CITRATE
     Indication: PRODUCT USED FOR UNKNOWN INDICATION
     Dosage: 100 UG/L NASAL
  3. DUROGESIC [Suspect]
     Active Substance: FENTANYL
     Indication: METASTATIC PAIN
     Dosage: 75 MG/H TRANSDERMAL

REACTIONS (6)
  - Incorrect dose administered [None]
  - Agitation [None]
  - Treatment noncompliance [None]
  - Drug abuse [None]
  - Nausea [None]
  - Tremor [None]

NARRATIVE: CASE EVENT DATE: 20141007
